APPROVED DRUG PRODUCT: APREMILAST
Active Ingredient: APREMILAST
Strength: 20MG
Dosage Form/Route: TABLET;ORAL
Application: A211734 | Product #002 | TE Code: AB
Applicant: MANKIND PHARMA LTD
Approved: Feb 7, 2024 | RLD: No | RS: No | Type: RX